FAERS Safety Report 10490629 (Version 2)
Quarter: 2014Q4

REPORT INFORMATION
  Report Type: Spontaneous
  Country: US (occurrence: US)
  Receive Date: 20141002
  Receipt Date: 20141002
  Transmission Date: 20150528
  Serious: No
  Sender: FDA-Public Use
  Company Number: US-GLAXOSMITHKLINE-A0994041A

PATIENT
  Age: 61 Year
  Sex: Female

DRUGS (5)
  1. ADVAIR HFA [Suspect]
     Active Substance: FLUTICASONE PROPIONATE\SALMETEROL XINAFOATE
     Indication: ASTHMA
     Dosage: 1PUFF TWICE PER DAY
     Route: 055
     Dates: start: 1998
  2. SEREVENT [Suspect]
     Active Substance: SALMETEROL XINAFOATE
     Indication: ASTHMA
     Dosage: 50MCG UNKNOWN
     Route: 055
     Dates: start: 2012
  3. NEXIUM [Suspect]
     Active Substance: ESOMEPRAZOLE MAGNESIUM
     Indication: ILL-DEFINED DISORDER
     Dosage: 20MG VARIABLE DOSE
     Route: 048
     Dates: start: 1999
  4. ADVAIR HFA [Suspect]
     Active Substance: FLUTICASONE PROPIONATE\SALMETEROL XINAFOATE
     Indication: ASTHMA
     Dosage: 2PUFF TWICE PER DAY
     Route: 055
  5. VERAMYST [Suspect]
     Active Substance: FLUTICASONE FUROATE
     Indication: PRODUCT USED FOR UNKNOWN INDICATION
     Route: 065

REACTIONS (15)
  - Oral pain [Unknown]
  - Dyspnoea [Unknown]
  - Immune system disorder [Unknown]
  - Lung infection [Unknown]
  - Candida infection [Unknown]
  - Glossodynia [Unknown]
  - Drug ineffective [Unknown]
  - Oral mucosal erythema [Unknown]
  - Oropharyngeal discomfort [Unknown]
  - Cough [Unknown]
  - Pharyngitis streptococcal [Unknown]
  - Adverse event [Unknown]
  - Oral disorder [Unknown]
  - Mucous membrane disorder [Unknown]
  - Pain [Unknown]

NARRATIVE: CASE EVENT DATE: 20120906
